FAERS Safety Report 11667174 (Version 1)
Quarter: 2015Q4

REPORT INFORMATION
  Report Type: Spontaneous
  Country: US (occurrence: US)
  Receive Date: 20151027
  Receipt Date: 20151027
  Transmission Date: 20160304
  Serious: Yes (Life-Threatening, Hospitalization)
  Sender: FDA-Public Use
  Company Number: US-ASTRAZENECA-2015SF01601

PATIENT
  Age: 51 Year
  Sex: Male
  Weight: 77.1 kg

DRUGS (6)
  1. ONDANSETRON [Concomitant]
     Active Substance: ONDANSETRON
     Dosage: 4 MG, EVERY EIGHT HOURS, AS REQUIRED
  2. RAMIPRIL. [Concomitant]
     Active Substance: RAMIPRIL
  3. ATORVASTATIN [Concomitant]
     Active Substance: ATORVASTATIN
  4. DAPAGLIFLOZIN [Suspect]
     Active Substance: DAPAGLIFLOZIN
     Indication: TYPE 2 DIABETES MELLITUS
     Route: 048
  5. AMLODIPINE [Concomitant]
     Active Substance: AMLODIPINE BESYLATE
  6. OMEPRAZOLE. [Concomitant]
     Active Substance: OMEPRAZOLE

REACTIONS (1)
  - Diabetic ketoacidosis [Unknown]
